FAERS Safety Report 16285333 (Version 1)
Quarter: 2019Q2

REPORT INFORMATION
  Report Type: Spontaneous
  Country: US (occurrence: US)
  Receive Date: 20190506
  Receipt Date: 20190506
  Transmission Date: 20190711
  Serious: No
  Sender: FDA-Public Use
  Company Number: None

PATIENT
  Age: 35 Year
  Sex: Male

DRUGS (19)
  1. KINREET 100MG/0.67 [Concomitant]
  2. LACTULOSE. [Concomitant]
     Active Substance: LACTULOSE
  3. DUREZOL 0.05% [Concomitant]
  4. AMITRIPTYLINE 25MG [Concomitant]
     Active Substance: AMITRIPTYLINE
  5. VITAMIN D NOS [Concomitant]
     Active Substance: VITAMIN D NOS
  6. LORAZEPAM 0.5MG [Concomitant]
     Active Substance: LORAZEPAM
  7. ONDANSETRON 4MG [Concomitant]
     Active Substance: ONDANSETRON
  8. MEKTOVI [Suspect]
     Active Substance: BINIMETINIB
     Route: 048
  9. MIRALAX [Concomitant]
     Active Substance: POLYETHYLENE GLYCOL 3350
  10. VALTREX 1G [Concomitant]
  11. BRAFTOVI [Suspect]
     Active Substance: ENCORAFENIB
     Route: 048
  12. PERIDX [Concomitant]
  13. DOCUSATE 100MG [Concomitant]
     Active Substance: DOCUSATE
  14. FLUTICASOEN [Concomitant]
  15. LEVITRACETAM 750 [Concomitant]
  16. LORATADINE 10MG [Concomitant]
     Active Substance: LORATADINE
  17. ACETAMINOPEH 500MG [Concomitant]
  18. ECONOZOLE NITREATE 1% [Concomitant]
  19. MAGNESIUM CITRATE. [Concomitant]
     Active Substance: MAGNESIUM CITRATE

REACTIONS (1)
  - Disease progression [None]
